FAERS Safety Report 16777007 (Version 6)
Quarter: 2020Q4

REPORT INFORMATION
  Report Type: Spontaneous
  Country: GR (occurrence: GR)
  Receive Date: 20190905
  Receipt Date: 20201102
  Transmission Date: 20210113
  Serious: Yes (Death, Life-Threatening, Hospitalization, Other)
  Sender: FDA-Public Use
  Company Number: PHHY2019GR204602

PATIENT
  Age: 66 Year
  Sex: Female
  Weight: 105 kg

DRUGS (5)
  1. CAPECITABINE. [Suspect]
     Active Substance: CAPECITABINE
     Indication: ADENOCARCINOMA OF COLON
     Dosage: D1-D14 Q3W; 2000 MG BID
     Route: 048
     Dates: start: 20181010, end: 20181019
  2. FILGRASTIM [Suspect]
     Active Substance: FILGRASTIM
     Indication: PANCYTOPENIA
     Dosage: UNK UNK, QD
     Route: 065
  3. OXALIPLATIN. [Suspect]
     Active Substance: OXALIPLATIN
     Indication: ADENOCARCINOMA OF COLON
     Dosage: 130 MG/M2, CYCLIC (ON DAY 1)
     Route: 065
  4. OXALIPLATIN. [Suspect]
     Active Substance: OXALIPLATIN
     Indication: COLORECTAL CANCER
  5. CAPECITABINE. [Suspect]
     Active Substance: CAPECITABINE
     Indication: COLORECTAL CANCER
     Dosage: D1-D14 Q3W; 2000 MG BID
     Route: 048
     Dates: start: 20181010, end: 20181019

REACTIONS (26)
  - Diverticulitis [Fatal]
  - Atrial fibrillation [Fatal]
  - Toxicity to various agents [Fatal]
  - Mucosal inflammation [Fatal]
  - Septic shock [Fatal]
  - Cardiac failure [Fatal]
  - Cardiotoxicity [Fatal]
  - Congestive cardiomyopathy [Fatal]
  - Myelosuppression [Not Recovered/Not Resolved]
  - Steatohepatitis [Fatal]
  - Pericardial effusion [Fatal]
  - Generalised tonic-clonic seizure [Fatal]
  - Drug ineffective [Fatal]
  - Myelosuppression [Recovered/Resolved]
  - Colitis [Not Recovered/Not Resolved]
  - Haematotoxicity [Recovered/Resolved]
  - Cardiogenic shock [Fatal]
  - Respiratory failure [Fatal]
  - Diarrhoea haemorrhagic [Fatal]
  - Gastrointestinal toxicity [Unknown]
  - Enterocolitis haemorrhagic [Fatal]
  - Pancytopenia [Fatal]
  - Stomatitis [Not Recovered/Not Resolved]
  - Pneumonia [Fatal]
  - Nausea [Fatal]
  - Neurotoxicity [Fatal]

NARRATIVE: CASE EVENT DATE: 20181022
